FAERS Safety Report 8624221-7 (Version None)
Quarter: 2012Q3

REPORT INFORMATION
  Report Type: 
  Country: None (occurrence: None)
  Receive Date: 20120827
  Receipt Date: 20120818
  Transmission Date: 20120928
  Serious: Yes (Hospitalization)
  Sender: FDA-Public Use
  Company Number: BR-ASTRAZENECA-2012SE60579

PATIENT
  Age: 71 Year
  Sex: Male
  Weight: 77 kg

DRUGS (1)
  1. ATACAND [Suspect]
     Indication: HYPERTENSION
     Route: 048
     Dates: end: 20120724

REACTIONS (2)
  - URINARY TRACT INFECTION [None]
  - CORONARY ARTERY OCCLUSION [None]
